FAERS Safety Report 8618260 (Version 2)
Quarter: 2013Q2

REPORT INFORMATION
  Report Type: Spontaneous
  Country: DK (occurrence: DK)
  Receive Date: 20120615
  Receipt Date: 20130412
  Transmission Date: 20140414
  Serious: Yes (Life-Threatening, Hospitalization)
  Sender: FDA-Public Use
  Company Number: PHHY2012DK051037

PATIENT
  Age: 61 Year
  Sex: Female

DRUGS (4)
  1. METFORMIN [Suspect]
     Indication: TYPE 2 DIABETES MELLITUS
  2. INSULIN [Concomitant]
  3. NSAID^S [Concomitant]
  4. ANGIOTENSIN II ANTAGONISTS [Concomitant]

REACTIONS (10)
  - Septic shock [Recovered/Resolved]
  - Bradycardia [Recovered/Resolved]
  - Hypotension [Recovered/Resolved]
  - Anuria [Recovered/Resolved]
  - Blood creatinine increased [Recovered/Resolved]
  - Lactic acidosis [Recovered/Resolved]
  - Hyperkalaemia [Recovered/Resolved]
  - Tachypnoea [Recovered/Resolved]
  - Confusional state [Recovered/Resolved]
  - Gastrointestinal disorder [Recovered/Resolved]
